FAERS Safety Report 4970934-8 (Version None)
Quarter: 2006Q2

REPORT INFORMATION
  Report Type: 
  Country: None (occurrence: None)
  Receive Date: 20060412
  Receipt Date: 20060404
  Transmission Date: 20061013
  Serious: Yes (Hospitalization)
  Sender: FDA-Public Use
  Company Number: FR-AVENTIS-200611245FR

PATIENT
  Age: 83 Year
  Sex: Male

DRUGS (9)
  1. LASILIX [Suspect]
     Route: 048
     Dates: start: 20060201, end: 20060201
  2. LASILIX [Suspect]
     Route: 048
     Dates: start: 20060202, end: 20060206
  3. TRIATEC [Suspect]
     Route: 048
     Dates: end: 20060203
  4. XENETIX [Suspect]
     Route: 042
     Dates: start: 20060202, end: 20060202
  5. PLAVIX [Concomitant]
     Route: 048
     Dates: start: 20060201, end: 20060201
  6. PLAVIX [Concomitant]
     Route: 048
     Dates: start: 20060202
  7. KARDEGIC [Concomitant]
     Route: 048
     Dates: start: 20060202
  8. CRESTOR [Concomitant]
     Dates: start: 20060202
  9. RISORDAN [Concomitant]
     Route: 042
     Dates: start: 20060201, end: 20060201

REACTIONS (1)
  - RENAL FAILURE ACUTE [None]
